FAERS Safety Report 7770096-8 (Version None)
Quarter: 2011Q3

REPORT INFORMATION
  Report Type: 
  Country: None (occurrence: None)
  Receive Date: 20110922
  Receipt Date: 20110915
  Transmission Date: 20111222
  Serious: Yes (Hospitalization)
  Sender: FDA-Public Use
  Company Number: GB-BRACCO-000429

PATIENT
  Age: 79 Year
  Sex: Male

DRUGS (10)
  1. TAMSULOSIN HCL [Concomitant]
  2. LEVOTHYROXINE SODIUM [Concomitant]
     Route: 048
  3. OMEPRAZOLE [Concomitant]
     Route: 048
  4. NICORANDIL [Concomitant]
     Route: 048
  5. CETIRIZINE HCL [Concomitant]
     Route: 048
  6. ASPIRIN [Concomitant]
     Route: 048
  7. GABAPENTIN [Concomitant]
  8. INSULIN [Concomitant]
  9. BISOPROLOL FUMARATE [Concomitant]
     Route: 048
  10. BARIUM [Suspect]
     Indication: DIAGNOSTIC PROCEDURE
     Dosage: 1 DF
     Route: 054
     Dates: start: 20110901, end: 20110901

REACTIONS (1)
  - HYPERKALAEMIA [None]
